FAERS Safety Report 9387178 (Version 1)
Quarter: 2013Q3

REPORT INFORMATION
  Report Type: Spontaneous
  Country: US (occurrence: US)
  Receive Date: 20130708
  Receipt Date: 20130708
  Transmission Date: 20140515
  Serious: Yes (Hospitalization)
  Sender: FDA-Public Use
  Company Number: US-MYLANLABS-2013S1014331

PATIENT
  Age: 3 Decade
  Sex: Male

DRUGS (1)
  1. MERCAPTOPURINE [Suspect]
     Indication: CROHN^S DISEASE
     Route: 065

REACTIONS (2)
  - Phlebosclerosis [Recovering/Resolving]
  - Portal hypertension [Recovering/Resolving]
